FAERS Safety Report 22057404 (Version 1)
Quarter: 2023Q1

REPORT INFORMATION
  Report Type: Spontaneous
  Country: SK (occurrence: SK)
  Receive Date: 20230303
  Receipt Date: 20230303
  Transmission Date: 20230417
  Serious: Yes (Hospitalization)
  Sender: FDA-Public Use
  Company Number: None

PATIENT

DRUGS (1)
  1. GRAZAX [Suspect]
     Active Substance: PHLEUM PRATENSE POLLEN
     Indication: Rhinitis allergic
     Dosage: UNK
     Dates: start: 20230126, end: 20230204

REACTIONS (1)
  - Lymphoid hyperplasia of intestine [Recovering/Resolving]

NARRATIVE: CASE EVENT DATE: 20230204
